FAERS Safety Report 8597717-4 (Version None)
Quarter: 2012Q3

REPORT INFORMATION
  Report Type: 
  Country: None (occurrence: None)
  Receive Date: 20120802
  Receipt Date: 20120723
  Transmission Date: 20120928
  Serious: Yes (Death, Other)
  Sender: FDA-Public Use
  Company Number: 2012P1052088

PATIENT

DRUGS (5)
  1. MEPROBAMATE [Suspect]
  2. MIRTAZAPINE [Suspect]
  3. CARISOPRODOL [Suspect]
  4. ALCOHOL (NO PREF. NAME) [Suspect]
  5. MORPHINE [Suspect]

REACTIONS (2)
  - ACCIDENTAL DEATH [None]
  - TOXICITY TO VARIOUS AGENTS [None]
